FAERS Safety Report 6665181-8 (Version None)
Quarter: 2010Q2

REPORT INFORMATION
  Report Type: 
  Country: None (occurrence: None)
  Receive Date: 20100402
  Receipt Date: 20100324
  Transmission Date: 20101027
  Serious: Yes (Other)
  Sender: FDA-Public Use
  Company Number: JP-BRISTOL-MYERS SQUIBB COMPANY-15041981

PATIENT
  Age: 62 Year
  Sex: Female

DRUGS (3)
  1. MITOMYCIN-C [Suspect]
     Indication: CERVIX CARCINOMA
     Route: 013
  2. CISPLATIN [Suspect]
     Indication: CERVIX CARCINOMA
     Route: 013
  3. PIRARUBICIN HCL [Suspect]
     Indication: CERVIX CARCINOMA
     Route: 013

REACTIONS (1)
  - BLADDER NECROSIS [None]
